FAERS Safety Report 9046508 (Version 1)
Quarter: 2013Q1

REPORT INFORMATION
  Report Type: Spontaneous
  Country: US (occurrence: None)
  Receive Date: 20130128
  Receipt Date: 20130128
  Transmission Date: 20140127
  Serious: Yes (Hospitalization)
  Sender: FDA-Public Use
  Company Number: None

PATIENT
  Age: 63 Year
  Sex: Male
  Weight: 88 kg

DRUGS (1)
  1. DAPTOMYCIN [Suspect]
     Indication: STAPHYLOCOCCAL OSTEOMYELITIS
     Route: 042
     Dates: start: 20130103, end: 20130122

REACTIONS (1)
  - Eosinophilic pneumonia [None]
